FAERS Safety Report 9383676 (Version 1)
Quarter: 2013Q3

REPORT INFORMATION
  Report Type: Spontaneous
  Country: IT (occurrence: IT)
  Receive Date: 20130704
  Receipt Date: 20130704
  Transmission Date: 20140515
  Serious: Yes (Other)
  Sender: FDA-Public Use
  Company Number: IT-JNJFOC-20130617636

PATIENT
  Age: 88 Year
  Sex: Female

DRUGS (5)
  1. HALDOL [Suspect]
     Indication: HALLUCINATION
     Dosage: 5 DAYS
     Route: 048
  2. HALDOL [Suspect]
     Indication: HALLUCINATION
     Route: 048
  3. HALDOL [Suspect]
     Indication: HALLUCINATION
     Route: 048
     Dates: start: 20130527, end: 20130609
  4. COUMADIN [Concomitant]
     Indication: PRODUCT USED FOR UNKNOWN INDICATION
     Route: 048
  5. TRIATEC [Concomitant]
     Indication: PRODUCT USED FOR UNKNOWN INDICATION
     Route: 048

REACTIONS (2)
  - Aphasia [Not Recovered/Not Resolved]
  - Asthenia [Not Recovered/Not Resolved]
